FAERS Safety Report 9383127 (Version 1)
Quarter: 2013Q3

REPORT INFORMATION
  Report Type: Spontaneous
  Country: GB (occurrence: GB)
  Receive Date: 20130704
  Receipt Date: 20130704
  Transmission Date: 20140515
  Serious: Yes (Other)
  Sender: FDA-Public Use
  Company Number: GB-RANBAXY-2013R1-70729

PATIENT
  Age: 56 Year
  Sex: Female

DRUGS (4)
  1. RISPERIDONE [Suspect]
     Indication: SCHIZOPHRENIA
     Dosage: UNK
     Route: 048
     Dates: start: 20130409
  2. RISPERIDONE [Suspect]
     Indication: SCHIZOPHRENIA
     Dosage: UNK
     Route: 048
     Dates: start: 20130520
  3. XEPLION [Suspect]
     Indication: SCHIZOPHRENIA
     Dosage: UNK
     Route: 030
     Dates: start: 20130502
  4. XEPLION [Suspect]
     Indication: SCHIZOPHRENIA
     Dosage: UNK
     Route: 030
     Dates: start: 20130509

REACTIONS (6)
  - Drug dose omission [Unknown]
  - Hypokalaemia [Recovering/Resolving]
  - Incorrect dose administered [Unknown]
  - Mental impairment [Unknown]
  - Blood prolactin increased [Not Recovered/Not Resolved]
  - Renal impairment [Recovering/Resolving]
